FAERS Safety Report 9149596 (Version 2)
Quarter: 2013Q2

REPORT INFORMATION
  Report Type: Spontaneous
  Country: US (occurrence: US)
  Receive Date: 20130308
  Receipt Date: 20130506
  Transmission Date: 20140414
  Serious: Yes (Other)
  Sender: FDA-Public Use
  Company Number: US-PFIZER INC-2013079304

PATIENT
  Sex: Male
  Weight: 111 kg

DRUGS (3)
  1. RAPAMUNE [Suspect]
     Indication: PROPHYLAXIS AGAINST TRANSPLANT REJECTION
     Dosage: 1 MG, 1X/DAY
     Dates: start: 2009
  2. CELLCEPT [Concomitant]
     Indication: TRANSPLANT REJECTION
     Dosage: 1000 MG, 2X/DAY
  3. PREDNISONE [Concomitant]
     Indication: TRANSPLANT REJECTION
     Dosage: 5 MG, ALTERNATE DAY

REACTIONS (3)
  - Graft versus host disease [Not Recovered/Not Resolved]
  - Kidney transplant rejection [Not Recovered/Not Resolved]
  - Renal impairment [Not Recovered/Not Resolved]
